FAERS Safety Report 8473338-9 (Version None)
Quarter: 2012Q2

REPORT INFORMATION
  Report Type: 
  Country: None (occurrence: None)
  Receive Date: 20120628
  Receipt Date: 20120619
  Transmission Date: 20120825
  Serious: No
  Sender: FDA-Public Use
  Company Number: US-BIOGENIDEC-2012BI009037

PATIENT
  Age: 26 Year
  Sex: Female

DRUGS (25)
  1. XANAX [Concomitant]
  2. VITAMIN D [Concomitant]
     Dates: start: 20120301
  3. TYSABRI [Suspect]
     Indication: MULTIPLE SCLEROSIS
     Route: 042
     Dates: start: 20080201, end: 20120106
  4. CLONAZEPAM [Concomitant]
     Dates: start: 20120301
  5. XANAX [Concomitant]
     Dates: start: 20120301
  6. AMBIEN [Concomitant]
  7. IMITREX [Concomitant]
  8. FLOMAX [Concomitant]
  9. KEPPRA [Concomitant]
  10. DITROPAN [Concomitant]
  11. AMBIEN [Concomitant]
     Dates: start: 20120301
  12. VICODIN [Concomitant]
  13. ADDERALL 5 [Concomitant]
     Dates: start: 20120301
  14. VITAMIN D [Concomitant]
  15. CLONAZEPAM [Concomitant]
  16. LUVOX [Concomitant]
     Dates: start: 20120301
  17. DITROPAN [Concomitant]
     Dates: start: 20120301
  18. ADDERALL 5 [Concomitant]
  19. TYSABRI [Suspect]
     Route: 042
     Dates: start: 20120101
  20. LUVOX [Concomitant]
  21. VICODIN [Concomitant]
     Dates: start: 20120301
  22. IMITREX [Concomitant]
     Dates: start: 20120301
  23. ZONEGRAN [Concomitant]
     Indication: WEIGHT CONTROL
  24. ZONEGRAN [Concomitant]
     Indication: ANALGESIC THERAPY
  25. FLOMAX [Concomitant]
     Dates: start: 20120301

REACTIONS (1)
  - PREGNANCY [None]
